FAERS Safety Report 4499595-1 (Version None)
Quarter: 2004Q4

REPORT INFORMATION
  Report Type: 
  Country: None (occurrence: None)
  Receive Date: 20041112
  Receipt Date: 20041102
  Transmission Date: 20050328
  Serious: Yes (Other)
  Sender: FDA-Public Use
  Company Number: FR-JNJFOC-20041101401

PATIENT
  Sex: Female

DRUGS (4)
  1. REMICADE [Suspect]
     Indication: CROHN'S DISEASE
     Route: 042
  2. REMICADE [Suspect]
     Indication: ANKYLOSING SPONDYLITIS
     Route: 042
  3. IMUREL [Suspect]
     Indication: CROHN'S DISEASE
     Route: 065
  4. IMUREL [Suspect]
     Indication: ANKYLOSING SPONDYLITIS
     Route: 065

REACTIONS (2)
  - DERMATOSIS [None]
  - FOLLICULITIS [None]
